FAERS Safety Report 12398117 (Version 2)
Quarter: 2016Q2

REPORT INFORMATION
  Report Type: Spontaneous
  Country: JP (occurrence: JP)
  Receive Date: 20160524
  Receipt Date: 20160613
  Transmission Date: 20160815
  Serious: Yes (Life-Threatening, Hospitalization)
  Sender: FDA-Public Use
  Company Number: JP-PFIZER INC-2015407066

PATIENT
  Age: 67 Year
  Sex: Female

DRUGS (8)
  1. HANP [Concomitant]
     Active Substance: CARPERITIDE
     Indication: CARDIAC FAILURE
     Dosage: UNK
     Dates: start: 20140728, end: 20140801
  2. LASIX [Concomitant]
     Active Substance: FUROSEMIDE
     Indication: CARDIAC FAILURE
     Dosage: UNK
     Dates: start: 20140724, end: 20140801
  3. ANCARON [Suspect]
     Active Substance: AMIODARONE HYDROCHLORIDE
     Indication: ATRIAL FIBRILLATION
     Dosage: 1.25 MG/ML, 10 ML/MIN
     Route: 040
     Dates: start: 20140725
  4. ANCARON [Suspect]
     Active Substance: AMIODARONE HYDROCHLORIDE
     Indication: ATRIAL FIBRILLATION
     Dosage: 200 MG, 2X/DAY
     Route: 048
     Dates: start: 20140729, end: 20140731
  5. ANCARON [Suspect]
     Active Substance: AMIODARONE HYDROCHLORIDE
     Dosage: 1.50 MG/ML, 17 ML/H (MAINTENANCE DOSE)
     Route: 041
     Dates: start: 20140725, end: 20140731
  6. POTASSIUM IODIDE. [Concomitant]
     Active Substance: POTASSIUM IODIDE
     Indication: THYROID DISORDER
     Dosage: UNK
     Dates: start: 20140724, end: 20140801
  7. ANCARON [Suspect]
     Active Substance: AMIODARONE HYDROCHLORIDE
     Dosage: 1.50 MG/ML, 33 ML/H (LOADING DOSE)
     Route: 041
     Dates: start: 20140725
  8. THYRADIN [Concomitant]
     Active Substance: LEVOTHYROXINE
     Indication: THYROID DISORDER
     Dosage: UNK
     Dates: start: 20140724, end: 20140801

REACTIONS (10)
  - Torsade de pointes [Recovered/Resolved]
  - Altered state of consciousness [Unknown]
  - Ventricular fibrillation [Recovering/Resolving]
  - Product use issue [Recovered/Resolved]
  - Ventricular fibrillation [Recovering/Resolving]
  - Seizure [Unknown]
  - Ventricular fibrillation [Recovering/Resolving]
  - Blood pressure decreased [Unknown]
  - Respiratory arrest [Recovering/Resolving]
  - Electrocardiogram QT prolonged [Recovering/Resolving]

NARRATIVE: CASE EVENT DATE: 201407
